FAERS Safety Report 14075297 (Version 4)
Quarter: 2018Q2

REPORT INFORMATION
  Report Type: Report from Study
  Country: CA (occurrence: CA)
  Receive Date: 20171011
  Receipt Date: 20180604
  Transmission Date: 20180711
  Serious: Yes (Death, Hospitalization)
  Sender: FDA-Public Use
  Company Number: CA-CELGENEUS-CAN-20170906564

PATIENT
  Age: 68 Year
  Sex: Female
  Weight: 64.9 kg

DRUGS (35)
  1. POTASSIUM CHLORIDE. [Concomitant]
     Active Substance: POTASSIUM CHLORIDE
     Indication: PROPHYLAXIS
     Dosage: 40 MILLIEQUIVALENTS
     Route: 048
     Dates: start: 20170828
  2. ALLOPURINOL. [Concomitant]
     Active Substance: ALLOPURINOL
     Indication: FATIGUE
     Dosage: 200 MILLIGRAM
     Route: 048
     Dates: start: 20170905
  3. FAMOTIDINE. [Concomitant]
     Active Substance: FAMOTIDINE
     Dosage: 20 MILLIGRAM
     Route: 048
     Dates: start: 20170915, end: 20170919
  4. APO-AMOXICLAV [Concomitant]
     Indication: ELECTROCARDIOGRAM QT PROLONGED
     Dosage: 875-125MG
     Route: 048
     Dates: start: 20170829, end: 20170901
  5. ENTRESTO [Concomitant]
     Active Substance: SACUBITRIL\VALSARTAN
     Indication: CARDIOMYOPATHY
     Dosage: 24.3/25.7MG
     Route: 048
     Dates: start: 20170818, end: 20170820
  6. VITAMIN D [Concomitant]
     Active Substance: CHOLECALCIFEROL
     Indication: PROPHYLAXIS
     Dosage: 500-1000MG
     Route: 048
     Dates: start: 2005
  7. DEXAMETHASONE. [Concomitant]
     Active Substance: DEXAMETHASONE
     Dosage: 4 MILLIGRAM
     Route: 048
     Dates: start: 20170915, end: 20170915
  8. DEXAMETHASONE. [Concomitant]
     Active Substance: DEXAMETHASONE
     Dosage: 2 MILLIGRAM
     Route: 048
     Dates: start: 20170919, end: 20170919
  9. NESTATIN [Concomitant]
     Indication: ORAL PAIN
     Dosage: 400 MILLILITER
     Route: 048
     Dates: start: 20170911
  10. PETROLATUM. [Concomitant]
     Active Substance: PETROLATUM
     Indication: STOMATITIS
     Dosage: 1 APPLICATION
     Route: 061
     Dates: start: 20170914
  11. ALENDRONATE [Concomitant]
     Active Substance: ALENDRONATE SODIUM
     Indication: OSTEOPOROSIS
     Dosage: 70 MILLIGRAM
     Route: 048
     Dates: start: 2014
  12. DEXAMETHASONE. [Concomitant]
     Active Substance: DEXAMETHASONE
     Dosage: 16 MILLIGRAM
     Route: 048
     Dates: start: 20170911, end: 20170912
  13. DEXAMETHASONE. [Concomitant]
     Active Substance: DEXAMETHASONE
     Dosage: 4 MILLIGRAM
     Route: 048
     Dates: start: 20170917, end: 20170918
  14. HYDROMORPHONE [Concomitant]
     Active Substance: HYDROMORPHONE
     Indication: ORAL PAIN
     Dosage: 0.5-1MG
     Route: 048
     Dates: start: 20170915
  15. PREDNISONE. [Concomitant]
     Active Substance: PREDNISONE
     Indication: RHEUMATOID ARTHRITIS
     Dosage: 1 MILLIGRAM
     Route: 048
     Dates: start: 2016
  16. HEPARIN [Concomitant]
     Active Substance: HEPARIN SODIUM
     Indication: PROPHYLAXIS
     Dosage: 1 MILLILITER
     Route: 041
     Dates: start: 20170907, end: 20170915
  17. SODIUM BICARBONATE. [Concomitant]
     Active Substance: SODIUM BICARBONATE
     Indication: ACUTE KIDNEY INJURY
     Dosage: 2 GRAM
     Route: 048
     Dates: start: 20170910, end: 20170912
  18. SODIUM BICARBONATE. [Concomitant]
     Active Substance: SODIUM BICARBONATE
     Dosage: 1500 MILLIGRAM
     Route: 048
     Dates: start: 20170912, end: 20170915
  19. HUMULIN NOS [Concomitant]
     Active Substance: INSULIN HUMAN
     Indication: PRODUCT USED FOR UNKNOWN INDICATION
     Dosage: 3 MILLILITER
     Route: 058
     Dates: start: 20170908, end: 20170915
  20. VALSARTAN. [Concomitant]
     Active Substance: VALSARTAN
     Indication: HYPERTENSION
     Dosage: 80 MILLIGRAM
     Route: 048
     Dates: start: 2007, end: 20170820
  21. ENTRESTO [Concomitant]
     Active Substance: SACUBITRIL\VALSARTAN
     Dosage: 24.3/25.7MG
     Route: 048
     Dates: start: 20170825
  22. HYDROXUREA [Concomitant]
     Indication: PRODUCT USED FOR UNKNOWN INDICATION
     Dosage: 1000 MILLIGRAM
     Route: 048
     Dates: start: 20170907, end: 20170909
  23. HYDROMORPHONE [Concomitant]
     Active Substance: HYDROMORPHONE
     Indication: STOMATITIS
     Dosage: .5 MILLIGRAM
     Route: 048
     Dates: start: 20170914, end: 20170915
  24. AG-221 [Suspect]
     Active Substance: ENASIDENIB
     Indication: ACUTE MYELOID LEUKAEMIA
     Dosage: 100 MILLIGRAM
     Route: 048
     Dates: start: 20170829, end: 20170920
  25. BISOPROLOL [Concomitant]
     Active Substance: BISOPROLOL
     Indication: HYPERTENSION
     Dosage: 5 MILLIGRAM
     Route: 048
     Dates: start: 2007
  26. MAGNESIUM [Concomitant]
     Active Substance: MAGNESIUM
     Indication: PROPHYLAXIS
     Dosage: 140 MILLIGRAM
     Route: 048
     Dates: start: 20170828
  27. HYDROXYCHLOROQUINE [Concomitant]
     Active Substance: HYDROXYCHLOROQUINE
     Indication: RHEUMATOID ARTHRITIS
     Dosage: 1 MILLIGRAM
     Route: 048
     Dates: start: 2005
  28. MAGIC MOUTH WASH [Concomitant]
     Active Substance: ALUMINUM HYDROXIDE\DIMETHICONE\DIPHENHYDRAMINE\LIDOCAINE\MAGNESIUM HYDROXIDE
     Indication: STOMATITIS
     Dosage: 45 MILLILITER
     Route: 048
     Dates: start: 20170904
  29. DIPHENHYDRAMINE. [Concomitant]
     Active Substance: DIPHENHYDRAMINE
     Indication: PRODUCT USED FOR UNKNOWN INDICATION
     Dosage: 25-50MG
     Route: 041
     Dates: start: 20170909, end: 20170915
  30. CLAVULIN [Concomitant]
     Active Substance: AMOXICILLIN\CLAVULANIC ACID
     Indication: RHINOVIRUS INFECTION
     Dosage: 875-125MG
     Route: 048
     Dates: start: 20170825
  31. DEXAMETHASONE. [Concomitant]
     Active Substance: DEXAMETHASONE
     Indication: ACUTE PROMYELOCYTIC LEUKAEMIA DIFFERENTIATION SYNDROME
     Dosage: 20 MILLIGRAM
     Route: 041
     Dates: start: 20170907, end: 20170910
  32. DEXAMETHASONE. [Concomitant]
     Active Substance: DEXAMETHASONE
     Dosage: 8 MILLIGRAM
     Route: 048
     Dates: start: 20170913, end: 20170914
  33. DEXAMETHASONE. [Concomitant]
     Active Substance: DEXAMETHASONE
     Dosage: 8 MILLIGRAM
     Route: 048
     Dates: start: 20170915, end: 20170916
  34. FAMOTIDINE. [Concomitant]
     Active Substance: FAMOTIDINE
     Indication: PROPHYLAXIS
     Dosage: 20 MILLIGRAM
     Route: 041
     Dates: start: 20170907, end: 20170915
  35. ACETAMINOPHEN. [Concomitant]
     Active Substance: ACETAMINOPHEN
     Indication: PAIN
     Dosage: 325 MILLIGRAM
     Route: 048
     Dates: start: 20170909, end: 20170915

REACTIONS (3)
  - Sepsis [Fatal]
  - Bacteraemia [Not Recovered/Not Resolved]
  - Clostridium difficile colitis [Fatal]

NARRATIVE: CASE EVENT DATE: 20170920
